FAERS Safety Report 22250517 (Version 2)
Quarter: 2023Q2

REPORT INFORMATION
  Report Type: Spontaneous
  Country: US (occurrence: US)
  Receive Date: 20230425
  Receipt Date: 20230518
  Transmission Date: 20230722
  Serious: No
  Sender: FDA-Public Use
  Company Number: US-BIOVITRUM-2022US05396

PATIENT
  Age: 77 Year
  Sex: Male

DRUGS (2)
  1. KINERET [Suspect]
     Active Substance: ANAKINRA
     Indication: Gout
     Dosage: 100MG/0.67ML, FREQUENCY: DAILY
     Route: 058
  2. KINERET [Suspect]
     Active Substance: ANAKINRA
     Indication: Autoinflammatory disease
     Dosage: 100MG/0.67ML, FREQUENCY: DAILY
     Route: 058
     Dates: start: 201904

REACTIONS (6)
  - Off label use [Unknown]
  - Product quality issue [Unknown]
  - White blood cell disorder [Unknown]
  - Platelet disorder [Unknown]
  - Product dose omission issue [Unknown]
  - Intentional product misuse [Unknown]

NARRATIVE: CASE EVENT DATE: 20190401
